FAERS Safety Report 12174156 (Version 9)
Quarter: 2016Q3

REPORT INFORMATION
  Report Type: Report from Study
  Country: CA (occurrence: CA)
  Receive Date: 20160314
  Receipt Date: 20160706
  Transmission Date: 20161109
  Serious: Yes (Other)
  Sender: FDA-Public Use
  Company Number: CA-ROCHE-1620021

PATIENT
  Age: 64 Year
  Sex: Male

DRUGS (11)
  1. DEXAMETHASONE. [Concomitant]
     Active Substance: DEXAMETHASONE
  2. FOLIC ACID. [Concomitant]
     Active Substance: FOLIC ACID
  3. ASA [Concomitant]
     Active Substance: ASPIRIN
  4. CARBOPLATIN. [Suspect]
     Active Substance: CARBOPLATIN
     Indication: MESOTHELIOMA
     Route: 042
     Dates: start: 20150513
  5. DILAUDID [Suspect]
     Active Substance: HYDROMORPHONE HYDROCHLORIDE
     Indication: ABDOMINAL PAIN
     Route: 065
  6. NEULASTA [Concomitant]
     Active Substance: PEGFILGRASTIM
     Indication: PROPHYLAXIS
     Route: 065
  7. FUROSEMIDE. [Concomitant]
     Active Substance: FUROSEMIDE
  8. PEMETREXED [Concomitant]
     Active Substance: PEMETREXED
     Indication: MESOTHELIOMA
     Route: 042
     Dates: start: 20150513
  9. ONDANSETRON [Concomitant]
     Active Substance: ONDANSETRON
  10. AVASTIN [Suspect]
     Active Substance: BEVACIZUMAB
     Indication: LUNG NEOPLASM MALIGNANT
     Dosage: ON HOLD?THE MOST RECENT INFUSION ON 11/MAR/2016
     Route: 042
     Dates: start: 20150715
  11. DILTIAZEM. [Concomitant]
     Active Substance: DILTIAZEM

REACTIONS (16)
  - Epistaxis [Recovered/Resolved]
  - Nausea [Unknown]
  - Ascites [Recovered/Resolved]
  - Insomnia [Recovering/Resolving]
  - Blood alkaline phosphatase increased [Unknown]
  - Drug intolerance [Unknown]
  - Epistaxis [Recovering/Resolving]
  - Thrombocytopenia [Not Recovered/Not Resolved]
  - Abdominal pain [Unknown]
  - Gamma-glutamyltransferase increased [Unknown]
  - Fatigue [Recovered/Resolved]
  - Drug ineffective [Unknown]
  - Decreased appetite [Unknown]
  - Haemoglobin decreased [Not Recovered/Not Resolved]
  - Blood creatinine increased [Unknown]
  - Weight decreased [Unknown]

NARRATIVE: CASE EVENT DATE: 20151110
